FAERS Safety Report 25708987 (Version 1)
Quarter: 2025Q3

REPORT INFORMATION
  Report Type: Spontaneous
  Country: EU (occurrence: EU)
  Receive Date: 20250821
  Receipt Date: 20250821
  Transmission Date: 20251020
  Serious: Yes (Hospitalization)
  Sender: STRIDES
  Company Number: EU-MLMSERVICE-20250801-PI598629-00162-2

PATIENT
  Age: 36 Year
  Sex: Male

DRUGS (3)
  1. FUROSEMIDE [Suspect]
     Active Substance: FUROSEMIDE
     Indication: Cardiac failure congestive
     Route: 065
     Dates: start: 2023
  2. LEVOSIMENDAN [Suspect]
     Active Substance: LEVOSIMENDAN
     Indication: Cardiac failure congestive
     Route: 042
     Dates: start: 2023
  3. DAPAGLIFLOZIN [Concomitant]
     Active Substance: DAPAGLIFLOZIN
     Indication: Cardiomyopathy
     Route: 065
     Dates: start: 2023

REACTIONS (1)
  - Hypotension [Recovering/Resolving]
